FAERS Safety Report 10267237 (Version 1)
Quarter: 2014Q2

REPORT INFORMATION
  Report Type: Spontaneous
  Country: US (occurrence: None)
  Receive Date: 20140625
  Receipt Date: 20140625
  Transmission Date: 20141212
  Serious: Yes (Hospitalization)
  Sender: FDA-Public Use
  Company Number: US-H14001-14-00082

PATIENT
  Age: 68 Year
  Sex: Male

DRUGS (1)
  1. PHENYLEPHRINE [Suspect]
     Indication: PRODUCT USED FOR UNKNOWN INDICATION
     Route: 042

REACTIONS (4)
  - Accidental overdose [None]
  - Blood pressure increased [None]
  - Bradycardia [None]
  - Acute myocardial infarction [None]
